FAERS Safety Report 18198363 (Version 2)
Quarter: 2020Q3

REPORT INFORMATION
  Report Type: Spontaneous
  Country: FR (occurrence: FR)
  Receive Date: 20200826
  Receipt Date: 20200828
  Transmission Date: 20201103
  Serious: Yes (Other)
  Sender: FDA-Public Use
  Company Number: FR-PFIZER INC-2020327028

PATIENT
  Age: 57 Year
  Sex: Male

DRUGS (5)
  1. SUBUTEX [Suspect]
     Active Substance: BUPRENORPHINE HYDROCHLORIDE
     Dosage: 16 MG, 1X/DAY
     Route: 045
  2. CANNABIS [Suspect]
     Active Substance: CANNABIS SATIVA SUBSP. INDICA TOP
     Dosage: UNK
     Route: 055
  3. VALIUM [Suspect]
     Active Substance: DIAZEPAM
     Indication: ANXIETY
     Dosage: 10 DF, SINGLE
     Route: 048
  4. COCAINE HYDROCHLORIDE. [Suspect]
     Active Substance: COCAINE HYDROCHLORIDE
     Dosage: UNK
     Route: 045
  5. LYRICA [Suspect]
     Active Substance: PREGABALIN
     Dosage: 200 MG, SINGLE

REACTIONS (3)
  - Drug abuse [Not Recovered/Not Resolved]
  - Intentional product misuse [Unknown]
  - Drug dependence [Not Recovered/Not Resolved]
